FAERS Safety Report 4987042-2 (Version None)
Quarter: 2006Q2

REPORT INFORMATION
  Report Type: 
  Country: None (occurrence: None)
  Receive Date: 20060501
  Receipt Date: 20060424
  Transmission Date: 20061013
  Serious: Yes (Hospitalization)
  Sender: FDA-Public Use
  Company Number: US-BRISTOL-MYERS SQUIBB COMPANY-13354758

PATIENT
  Age: 11 Year
  Sex: Female

DRUGS (4)
  1. METHOTREXATE [Suspect]
     Indication: JUVENILE ARTHRITIS
     Route: 058
  2. ENBREL [Suspect]
     Indication: JUVENILE ARTHRITIS
     Route: 058
  3. PREDNISONE TAB [Suspect]
     Indication: JUVENILE ARTHRITIS
     Route: 048
  4. NAPROXEN [Concomitant]
     Indication: JUVENILE ARTHRITIS
     Route: 048

REACTIONS (1)
  - ABSCESS [None]
